FAERS Safety Report 7520191-3 (Version None)
Quarter: 2011Q2

REPORT INFORMATION
  Report Type: 
  Country: None (occurrence: None)
  Receive Date: 20110602
  Receipt Date: 20110519
  Transmission Date: 20111010
  Serious: Yes (Other)
  Sender: FDA-Public Use
  Company Number: US-BAUSCH-2011BL003419

PATIENT
  Age: 21 Year
  Sex: Female

DRUGS (1)
  1. PROPARACAINE HCL [Suspect]
     Indication: EYE PAIN
     Route: 047
     Dates: start: 20071001, end: 20071001

REACTIONS (1)
  - ACANTHAMOEBA KERATITIS [None]
